FAERS Safety Report 9251987 (Version 1)
Quarter: 2013Q2

REPORT INFORMATION
  Report Type: Spontaneous
  Country: JP (occurrence: JP)
  Receive Date: 20130424
  Receipt Date: 20130424
  Transmission Date: 20140414
  Serious: Yes (Other)
  Sender: FDA-Public Use
  Company Number: JP-PFIZER INC-2013123849

PATIENT
  Sex: 0

DRUGS (4)
  1. ZYVOX [Suspect]
     Indication: PNEUMONIA
     Dosage: 600 MG/DAY
     Route: 048
  2. OLMETEC [Concomitant]
     Indication: HYPERTENSION
  3. LASIX [Concomitant]
     Indication: HYPERTENSION
     Dosage: UNK
  4. ARTIST [Concomitant]
     Indication: HYPERTENSION

REACTIONS (2)
  - Hypothermia [Recovered/Resolved]
  - Blood pressure decreased [Recovered/Resolved]
